FAERS Safety Report 16991163 (Version 1)
Quarter: 2019Q4

REPORT INFORMATION
  Report Type: Spontaneous
  Country: US (occurrence: US)
  Receive Date: 20190920
  Receipt Date: 20190920
  Transmission Date: 20200122
  Serious: No
  Sender: FDA-Public Use
  Company Number: None

PATIENT
  Sex: Female

DRUGS (2)
  1. MYCOPHENOLATE [Suspect]
     Active Substance: MYCOPHENOLIC ACID
     Indication: RETINAL VASCULITIS
     Route: 048
     Dates: start: 20190225
  2. HUMIRA [Suspect]
     Active Substance: ADALIMUMAB
     Indication: RETINAL VASCULITIS
     Dosage: ?          OTHER FREQUENCY:EVERY 7 DAYS;?
     Route: 058
     Dates: start: 20181127

REACTIONS (2)
  - Therapy cessation [None]
  - Herpes zoster [None]
